FAERS Safety Report 25034625 (Version 2)
Quarter: 2025Q2

REPORT INFORMATION
  Report Type: Report from Study
  Country: CO (occurrence: CO)
  Receive Date: 20250304
  Receipt Date: 20250417
  Transmission Date: 20250717
  Serious: Yes (Death)
  Sender: RECORDATI
  Company Number: CO-RECORDATI RARE DISEASES-2025001353

PATIENT
  Age: 51 Year
  Sex: Female
  Weight: 50 kg

DRUGS (1)
  1. PANHEMATIN [Suspect]
     Active Substance: HEMIN
     Indication: Porphyria acute
     Route: 042
     Dates: start: 20190701, end: 20250223

REACTIONS (2)
  - Death [Fatal]
  - Off label use [Recovered/Resolved]

NARRATIVE: CASE EVENT DATE: 20190701
